FAERS Safety Report 8328338-6 (Version None)
Quarter: 2012Q2

REPORT INFORMATION
  Report Type: 
  Country: None (occurrence: None)
  Receive Date: 20120502
  Receipt Date: 20120418
  Transmission Date: 20120825
  Serious: Yes (Other)
  Sender: FDA-Public Use
  Company Number: TN-SANOFI-AVENTIS-2012SA029922

PATIENT
  Sex: Male

DRUGS (1)
  1. CEFOTAXIME SODIUM [Suspect]
     Route: 065

REACTIONS (2)
  - ACCIDENTAL DRUG INTAKE BY CHILD [None]
  - VASCULITIS [None]
